FAERS Safety Report 6178080-5 (Version None)
Quarter: 2009Q2

REPORT INFORMATION
  Report Type: 
  Country: None (occurrence: None)
  Receive Date: 20090501
  Receipt Date: 20090501
  Transmission Date: 20091009
  Serious: Yes (Hospitalization)
  Sender: FDA-Public Use
  Company Number: None

PATIENT
  Age: 59 Year
  Sex: Male
  Weight: 130.2 kg

DRUGS (1)
  1. METOLAZONE [Suspect]
     Indication: POLYURIA
     Dosage: 2.5 MG OTHER PO
     Route: 048
     Dates: start: 20080601, end: 20090425

REACTIONS (1)
  - HYPOTENSION [None]
